FAERS Safety Report 6989126-6 (Version None)
Quarter: 2010Q3

REPORT INFORMATION
  Report Type: 
  Country: None (occurrence: None)
  Receive Date: 20100916
  Receipt Date: 20090924
  Transmission Date: 20110219
  Serious: Yes (Death, Hospitalization)
  Sender: FDA-Public Use
  Company Number: CA-PFIZER INC-2009274035

PATIENT
  Sex: Male

DRUGS (1)
  1. LYRICA [Suspect]
     Indication: PAIN IN EXTREMITY
     Dosage: UNK
     Dates: start: 20090609

REACTIONS (6)
  - APHAGIA [None]
  - DEATH [None]
  - DIPLEGIA [None]
  - MONOPLEGIA [None]
  - PYREXIA [None]
  - VOCAL CORD PARALYSIS [None]
